FAERS Safety Report 13644889 (Version 1)
Quarter: 2017Q2

REPORT INFORMATION
  Report Type: Spontaneous
  Country: US (occurrence: US)
  Receive Date: 20170612
  Receipt Date: 20170612
  Transmission Date: 20170830
  Serious: Yes (Other)
  Sender: FDA-Public Use
  Company Number: US-ROCHE-1553014

PATIENT
  Sex: Male

DRUGS (1)
  1. XELODA [Suspect]
     Active Substance: CAPECITABINE
     Indication: NEOPLASM MALIGNANT
     Dosage: 2 TABS
     Route: 048
     Dates: start: 201501, end: 201503

REACTIONS (11)
  - Palmar-plantar erythrodysaesthesia syndrome [Unknown]
  - Eye irritation [Unknown]
  - Oedema peripheral [Unknown]
  - Dyspnoea [Unknown]
  - Nausea [Unknown]
  - Asthenia [Unknown]
  - Insomnia [Unknown]
  - Peripheral swelling [Unknown]
  - Lung infection [Unknown]
  - Haemoglobin decreased [Unknown]
  - Somnolence [Unknown]
